FAERS Safety Report 16918918 (Version 1)
Quarter: 2019Q4

REPORT INFORMATION
  Report Type: Spontaneous
  Country: GB (occurrence: GB)
  Receive Date: 20191015
  Receipt Date: 20191015
  Transmission Date: 20200122
  Serious: Yes (Other)
  Sender: FDA-Public Use
  Company Number: GB-MYLANLABS-2019M1095578

PATIENT
  Age: 65 Year
  Sex: Male
  Weight: 75.29 kg

DRUGS (2)
  1. TRAMADOL. [Suspect]
     Active Substance: TRAMADOL
     Indication: SCIATICA
     Dosage: 200 MILLIGRAM, TOTAL, UP TO 8 CAPSULES PER DAY
     Route: 048
     Dates: start: 20181217, end: 20190228
  2. TEMAZEPAM. [Concomitant]
     Active Substance: TEMAZEPAM
     Indication: PRODUCT USED FOR UNKNOWN INDICATION
     Dosage: OCCASIONAL USE, NO MORE THAN EVERY 4TH NIGHT, LEAVING 2 CONSECUTIVE NIGHTS WHEN PRODUCT ISN^T TAKEN

REACTIONS (4)
  - Restlessness [Recovered/Resolved]
  - Insomnia [Recovered/Resolved]
  - Constipation [Unknown]
  - Agitation [Recovered/Resolved]

NARRATIVE: CASE EVENT DATE: 20181218
